FAERS Safety Report 14164953 (Version 2)
Quarter: 2017Q4

REPORT INFORMATION
  Report Type: Spontaneous
  Country: DE (occurrence: DE)
  Receive Date: 20171107
  Receipt Date: 20171117
  Transmission Date: 20180321
  Serious: Yes (Death, Life-Threatening, Hospitalization)
  Sender: FDA-Public Use
  Company Number: PHHY2017DE133239

PATIENT
  Sex: Male

DRUGS (2)
  1. MEKINIST [Suspect]
     Active Substance: TRAMETINIB DIMETHYL SULFOXIDE
     Indication: MALIGNANT MELANOMA
     Route: 065
  2. TAFINLAR [Suspect]
     Active Substance: DABRAFENIB MESYLATE
     Indication: MALIGNANT MELANOMA
     Route: 065

REACTIONS (5)
  - Cerebral haemorrhage [Fatal]
  - Status epilepticus [Fatal]
  - Subdural haematoma [Fatal]
  - Metastases to central nervous system [Fatal]
  - Dysphagia [Fatal]

NARRATIVE: CASE EVENT DATE: 20170902
